FAERS Safety Report 9482374 (Version 1)
Quarter: 2013Q3

REPORT INFORMATION
  Report Type: Report from Study
  Country: GB (occurrence: GB)
  Receive Date: 20130828
  Receipt Date: 20130828
  Transmission Date: 20140515
  Serious: Yes (Hospitalization)
  Sender: FDA-Public Use
  Company Number: PHHO2013GB010967

PATIENT
  Age: 52 Year
  Sex: Female
  Weight: 68.9 kg

DRUGS (9)
  1. NO TREATMENT RECEIVED [Suspect]
     Indication: BREAST CANCER
  2. 5-FLUOROURACIL [Suspect]
     Indication: BREAST CANCER
     Dosage: 850 MG, UNK
     Route: 042
     Dates: start: 20101011, end: 201102
  3. CYCLOPHOSPHAMIDE [Suspect]
     Indication: BREAST CANCER
     Dosage: 900 MG, UNK
     Route: 042
     Dates: start: 20101011, end: 201102
  4. EPIRUBICIN [Concomitant]
     Indication: BREAST CANCER
     Dosage: 170 MG, UNK
     Route: 042
     Dates: start: 20101011, end: 201102
  5. ONDANSETRON [Concomitant]
     Indication: PROPHYLAXIS
     Dosage: 8 MG, BID
     Route: 048
     Dates: start: 20101011
  6. DEXAMETHASONE [Concomitant]
     Indication: PROPHYLAXIS
     Dosage: 8 MG, BID
     Route: 048
     Dates: start: 20101011
  7. RATIOGRASTIM [Concomitant]
     Indication: PROPHYLAXIS
     Dosage: 300 UG, QD
     Route: 058
     Dates: start: 20101012
  8. METOCLOPRAMIDE [Concomitant]
     Indication: PROPHYLAXIS
     Dosage: 20 MG, QD
     Route: 048
     Dates: start: 20101011
  9. LORAZEPAM [Concomitant]
     Indication: PROPHYLAXIS
     Dosage: 0.5 MG, QD
     Route: 048
     Dates: start: 20101011

REACTIONS (1)
  - Dyspnoea [Recovered/Resolved]
